FAERS Safety Report 20025680 (Version 3)
Quarter: 2022Q1

REPORT INFORMATION
  Report Type: Report from Study
  Country: CO (occurrence: CO)
  Receive Date: 20211102
  Receipt Date: 20220110
  Transmission Date: 20220423
  Serious: Yes (Other)
  Sender: FDA-Public Use
  Company Number: CO-BRISTOL-MYERS SQUIBB COMPANY-BMS-2021-114985

PATIENT
  Age: 25 Year
  Sex: Female
  Weight: 44 kg

DRUGS (3)
  1. ABATACEPT [Suspect]
     Active Substance: ABATACEPT
     Indication: Rheumatoid arthritis
     Dosage: 500 MILLIGRAM, EVERY 28 DAYS
     Route: 042
     Dates: start: 20210326
  2. LEVOTHYROXINE [Concomitant]
     Active Substance: LEVOTHYROXINE
     Indication: Thyroid disorder
     Dosage: 25 MG, EVERY 24 HOURS
     Route: 048
  3. TRIMETHOPRIM SULFATE [Concomitant]
     Active Substance: TRIMETHOPRIM SULFATE
     Indication: Infection
     Dosage: 160 MILLIGRAM, Q12H
     Route: 048
     Dates: start: 20220105

REACTIONS (5)
  - Arthritis [Unknown]
  - Wound [Recovering/Resolving]
  - Discharge [Recovering/Resolving]
  - Inflammation [Unknown]
  - Localised infection [Recovering/Resolving]

NARRATIVE: CASE EVENT DATE: 20211026
